FAERS Safety Report 6498524-9 (Version None)
Quarter: 2009Q4

REPORT INFORMATION
  Report Type: 
  Country: None (occurrence: None)
  Receive Date: 20091215
  Receipt Date: 20091203
  Transmission Date: 20100525
  Serious: Yes (Hospitalization)
  Sender: FDA-Public Use
  Company Number: FR-MERCK-0912FRA00007

PATIENT
  Age: 72 Year
  Sex: Male

DRUGS (5)
  1. VYTORIN [Suspect]
     Indication: DYSLIPIDAEMIA
     Route: 048
     Dates: start: 20091006, end: 20091013
  2. EZETIMIBE [Suspect]
     Indication: DYSLIPIDAEMIA
     Route: 048
     Dates: start: 20091014, end: 20091017
  3. EZETIMIBE [Suspect]
     Route: 048
     Dates: start: 20090101, end: 20090101
  4. LANSOPRAZOLE [Concomitant]
     Route: 065
  5. PANCREATIC EXTRACT [Concomitant]
     Route: 065

REACTIONS (2)
  - CHOLESTASIS [None]
  - CYTOLYTIC HEPATITIS [None]
